FAERS Safety Report 12168765 (Version 1)
Quarter: 2016Q1

REPORT INFORMATION
  Report Type: Other
  Country: US (occurrence: US)
  Receive Date: 20160310
  Receipt Date: 20160310
  Transmission Date: 20160526
  Serious: Yes (Other)
  Sender: FDA-Public Use
  Company Number: US-SHIRE-US201602785

PATIENT

DRUGS (1)
  1. ELAPRASE [Suspect]
     Active Substance: IDURSULFASE
     Indication: MUCOPOLYSACCHARIDOSIS II
     Dosage: 30 MG (ALTERNATES 30 MG + 36 MG WEEKELY), 1X/DAY:QD
     Route: 041
     Dates: start: 20061122

REACTIONS (4)
  - Neck pain [Unknown]
  - Psychiatric symptom [Unknown]
  - Depression [Unknown]
  - Back pain [Unknown]
